FAERS Safety Report 15478931 (Version 1)
Quarter: 2018Q4

REPORT INFORMATION
  Report Type: Spontaneous
  Country: IT (occurrence: IT)
  Receive Date: 20181009
  Receipt Date: 20181009
  Transmission Date: 20190205
  Serious: No
  Sender: FDA-Public Use
  Company Number: IT-IPSEN BIOPHARMACEUTICALS, INC.-2018-13502

PATIENT
  Age: 55 Year
  Sex: Female

DRUGS (27)
  1. OXALIPLATIN. [Suspect]
     Active Substance: OXALIPLATIN
     Indication: PANCREATIC CARCINOMA METASTATIC
  2. ONIVYDE [Suspect]
     Active Substance: IRINOTECAN HYDROCHLORIDE
     Indication: PANCREATIC CARCINOMA METASTATIC
  3. MELATONMED 20 MG [Concomitant]
     Indication: ADENOCARCINOMA PANCREAS
  4. MELATONMED 20 MG [Concomitant]
     Indication: METASTASES TO LIVER
  5. AHCC 500 MG [Concomitant]
     Indication: ADENOCARCINOMA PANCREAS
  6. ONCOPHYT 300 MG [Concomitant]
     Indication: METASTASES TO LIVER
  7. ONCOPHYT 300 MG [Concomitant]
     Indication: PANCREATIC CARCINOMA METASTATIC
  8. ARTEMISININ 100 MG [Concomitant]
     Indication: ADENOCARCINOMA PANCREAS
  9. MISTLETOE [Concomitant]
     Active Substance: VISCUM ALBUM FRUITING TOP
     Indication: ADENOCARCINOMA PANCREAS
  10. ONIVYDE [Suspect]
     Active Substance: IRINOTECAN HYDROCHLORIDE
     Indication: ADENOCARCINOMA PANCREAS
     Dosage: IN A 1/8/21 REGIMEN; CYCLICAL
     Route: 042
  11. OXALIPLATIN. [Suspect]
     Active Substance: OXALIPLATIN
     Indication: ADENOCARCINOMA PANCREAS
     Dosage: IN A 1/8/21 REGIMEN; CYCLICAL
     Route: 042
  12. NORFLO 100 MG [Concomitant]
     Indication: ADENOCARCINOMA PANCREAS
  13. NORFLO 100 MG [Concomitant]
     Indication: PANCREATIC CARCINOMA METASTATIC
  14. MELATONMED 20 MG [Concomitant]
     Indication: PANCREATIC CARCINOMA METASTATIC
  15. OXALIPLATIN. [Suspect]
     Active Substance: OXALIPLATIN
     Indication: METASTASES TO LIVER
  16. AHCC 500 MG [Concomitant]
     Indication: PANCREATIC CARCINOMA METASTATIC
  17. ONCOPHYT 300 MG [Concomitant]
     Indication: ADENOCARCINOMA PANCREAS
  18. ONIVYDE [Suspect]
     Active Substance: IRINOTECAN HYDROCHLORIDE
     Indication: METASTASES TO LIVER
  19. MISTLETOE [Concomitant]
     Active Substance: VISCUM ALBUM FRUITING TOP
     Indication: ADENOCARCINOMA PANCREAS
     Route: 058
  20. MISTLETOE [Concomitant]
     Active Substance: VISCUM ALBUM FRUITING TOP
     Indication: METASTASES TO LIVER
  21. AHCC 500 MG [Concomitant]
     Indication: METASTASES TO LIVER
  22. ARTEMISININ 100 MG [Concomitant]
     Indication: PANCREATIC CARCINOMA METASTATIC
  23. FLUOROURACIL. [Suspect]
     Active Substance: FLUOROURACIL
     Indication: ADENOCARCINOMA PANCREAS
     Dosage: IN A 1/8/21 REGIMEN; CYCLICAL
     Route: 042
  24. FLUOROURACIL. [Suspect]
     Active Substance: FLUOROURACIL
     Indication: PANCREATIC CARCINOMA METASTATIC
     Dosage: OVER 46 HOURS; CYCLICAL
     Route: 042
  25. FLUOROURACIL. [Suspect]
     Active Substance: FLUOROURACIL
     Indication: METASTASES TO LIVER
  26. NORFLO 100 MG [Concomitant]
     Indication: METASTASES TO LIVER
  27. ARTEMISININ 100 MG [Concomitant]
     Indication: METASTASES TO LIVER

REACTIONS (3)
  - Vomiting [Unknown]
  - Nausea [Unknown]
  - Pain [Unknown]
